FAERS Safety Report 16779970 (Version 4)
Quarter: 2019Q3

REPORT INFORMATION
  Report Type: Spontaneous
  Country: RO (occurrence: RO)
  Receive Date: 20190906
  Receipt Date: 20190926
  Transmission Date: 20191005
  Serious: Yes (Death, Other)
  Sender: FDA-Public Use
  Company Number: PHHY2019RO206658

PATIENT
  Age: 66 Year
  Sex: Female

DRUGS (12)
  1. METHOTREXATE INJECTION [Suspect]
     Active Substance: METHOTREXATE
     Dosage: 1375 MG, (IN A 22 HOURS)
     Route: 042
     Dates: start: 20170203
  2. DEXAMETHASONE. [Suspect]
     Active Substance: DEXAMETHASONE
     Indication: B PRECURSOR TYPE ACUTE LEUKAEMIA
     Dosage: 1 DROP EVERY HOUR
     Route: 065
     Dates: start: 20170204, end: 20170207
  3. CYTARABINE. [Suspect]
     Active Substance: CYTARABINE
     Indication: B PRECURSOR TYPE ACUTE LEUKAEMIA
     Dosage: 25 MG, UNK
     Route: 037
     Dates: start: 20170130
  4. METHOTREXATE INJECTION [Suspect]
     Active Substance: METHOTREXATE
     Dosage: 345 MG, (DURING 2 HOURS)
     Route: 042
     Dates: start: 20170203
  5. VINCRISTINE [Suspect]
     Active Substance: VINCRISTINE
     Dosage: 2 DF, QD
     Route: 042
     Dates: start: 20170123
  6. METHOTREXATE INJECTION [Suspect]
     Active Substance: METHOTREXATE
     Indication: B PRECURSOR TYPE ACUTE LEUKAEMIA
     Dosage: 15 MG, UNK
     Route: 037
     Dates: start: 20170130
  7. DOXORUBICIN [Suspect]
     Active Substance: DOXORUBICIN
     Indication: B PRECURSOR TYPE ACUTE LEUKAEMIA
     Dosage: 80 MG, UNK
     Route: 042
     Dates: start: 20170116
  8. CYTARABINE. [Suspect]
     Active Substance: CYTARABINE
     Dosage: 2 DF, QD (IN IV PERFUSION OF 2 HRS))
     Route: 042
     Dates: start: 20170204, end: 20170205
  9. METHYLPREDNISOLONE. [Suspect]
     Active Substance: METHYLPREDNISOLONE
     Indication: B PRECURSOR TYPE ACUTE LEUKAEMIA
     Dosage: 50 MG, Q12H
     Route: 042
     Dates: start: 20170203, end: 20170205
  10. CYCLOPHOSPHAMIDE. [Suspect]
     Active Substance: CYCLOPHOSPHAMIDE
     Indication: B PRECURSOR TYPE ACUTE LEUKAEMIA
     Dosage: UNK
     Route: 065
  11. VINCRISTINE [Suspect]
     Active Substance: VINCRISTINE
     Indication: B PRECURSOR TYPE ACUTE LEUKAEMIA
     Dosage: 2 MG, QD
     Route: 042
     Dates: start: 20170115
  12. FRAGMIN [Concomitant]
     Active Substance: DALTEPARIN SODIUM
     Indication: PROPHYLAXIS
     Dosage: 5000 U/L, QD
     Route: 058

REACTIONS (9)
  - Oedema [Fatal]
  - Hepatic infarction [Fatal]
  - Abdominal pain upper [Fatal]
  - Clostridium difficile colitis [Fatal]
  - Hepatic failure [Fatal]
  - Dyspnoea [Fatal]
  - Hypotension [Fatal]
  - Bone marrow failure [Recovering/Resolving]
  - Cardiopulmonary failure [Fatal]

NARRATIVE: CASE EVENT DATE: 20170206
